FAERS Safety Report 7041351-4 (Version None)
Quarter: 2010Q4

REPORT INFORMATION
  Report Type: 
  Country: None (occurrence: None)
  Receive Date: 20101013
  Receipt Date: 20101005
  Transmission Date: 20110411
  Serious: Yes (Other)
  Sender: FDA-Public Use
  Company Number: US-RB-014232-10

PATIENT
  Age: 17 Year
  Sex: Male
  Weight: 83.25 kg

DRUGS (1)
  1. DELSYM [Suspect]
     Dates: start: 20101002

REACTIONS (1)
  - DRUG ABUSE [None]
